FAERS Safety Report 19579640 (Version 1)
Quarter: 2021Q3

REPORT INFORMATION
  Report Type: Spontaneous
  Country: US (occurrence: US)
  Receive Date: 20210719
  Receipt Date: 20210719
  Transmission Date: 20211014
  Serious: No
  Sender: FDA-Public Use
  Company Number: US-NOVOPROD-779957

PATIENT
  Sex: Female

DRUGS (1)
  1. OZEMPIC [Suspect]
     Active Substance: SEMAGLUTIDE
     Indication: TYPE 2 DIABETES MELLITUS
     Dosage: 0.5 MG X 1 DOSE
     Route: 058
     Dates: start: 20210106

REACTIONS (24)
  - Body temperature fluctuation [Recovering/Resolving]
  - Back pain [Unknown]
  - Blood glucose increased [Recovering/Resolving]
  - Pollakiuria [Recovering/Resolving]
  - Hiccups [Recovering/Resolving]
  - Peripheral swelling [Recovering/Resolving]
  - Insomnia [Not Recovered/Not Resolved]
  - Fatigue [Not Recovered/Not Resolved]
  - Dysphonia [Unknown]
  - Vomiting [Recovering/Resolving]
  - Overdose [Recovering/Resolving]
  - Tongue ulceration [Recovering/Resolving]
  - Condition aggravated [Not Recovered/Not Resolved]
  - Abdominal pain [Recovering/Resolving]
  - Urine output increased [Recovering/Resolving]
  - Butterfly rash [Not Recovered/Not Resolved]
  - Weight decreased [Recovering/Resolving]
  - Diarrhoea [Recovering/Resolving]
  - Constipation [Recovering/Resolving]
  - Eructation [Recovering/Resolving]
  - Dry mouth [Not Recovered/Not Resolved]
  - Dizziness [Recovering/Resolving]
  - Dehydration [Recovering/Resolving]
  - Product dispensing error [Unknown]

NARRATIVE: CASE EVENT DATE: 20210106
